FAERS Safety Report 5360201-5 (Version None)
Quarter: 2007Q2

REPORT INFORMATION
  Report Type: 
  Country: None (occurrence: None)
  Receive Date: 20070618
  Receipt Date: 20070606
  Transmission Date: 20071010
  Serious: Yes (Hospitalization)
  Sender: FDA-Public Use
  Company Number: PHBS2007PL09864

PATIENT
  Age: 50 Year
  Sex: Male

DRUGS (1)
  1. SANDIMMUNE [Suspect]
     Indication: NEPHROTIC SYNDROME
     Dosage: 5 MG/KG/D
     Route: 065

REACTIONS (10)
  - ARTHRALGIA [None]
  - BODY TEMPERATURE INCREASED [None]
  - C-REACTIVE PROTEIN INCREASED [None]
  - COMPLEMENT FACTOR C3 DECREASED [None]
  - EOSINOPHILIA [None]
  - IMMUNE COMPLEX LEVEL INCREASED [None]
  - LEUKOCYTOCLASTIC VASCULITIS [None]
  - LEUKOCYTOSIS [None]
  - OEDEMA [None]
  - RASH MACULO-PAPULAR [None]
